FAERS Safety Report 24246250 (Version 1)
Quarter: 2024Q3

REPORT INFORMATION
  Report Type: Report from Study
  Country: GB (occurrence: GB)
  Receive Date: 20240825
  Receipt Date: 20240825
  Transmission Date: 20241017
  Serious: Yes (Death, Hospitalization, Other)
  Sender: ROCHE
  Company Number: GB-ROCHE-10000061333

PATIENT

DRUGS (1)
  1. RITUXIMAB [Suspect]
     Active Substance: RITUXIMAB
     Indication: Glomerulonephritis membranous
     Dosage: 2 DOSES
     Route: 042

REACTIONS (16)
  - COVID-19 [Fatal]
  - Cellulitis [Fatal]
  - Pneumonia [Unknown]
  - Lower respiratory tract infection [Unknown]
  - Urinary tract infection [Unknown]
  - Gastroenteritis [Unknown]
  - Device related infection [Unknown]
  - Sepsis [Unknown]
  - Urticaria [Unknown]
  - Pruritus [Unknown]
  - Headache [Unknown]
  - Pyrexia [Unknown]
  - Nausea [Unknown]
  - Angioedema [Unknown]
  - Hypotension [Unknown]
  - Dizziness [Unknown]
